FAERS Safety Report 8127760-0 (Version None)
Quarter: 2012Q1

REPORT INFORMATION
  Report Type: 
  Country: None (occurrence: None)
  Receive Date: 20120210
  Receipt Date: 20120206
  Transmission Date: 20120608
  Serious: Yes (Other)
  Sender: FDA-Public Use
  Company Number: FR-PFIZER INC-2011196085

PATIENT
  Age: 61 Year
  Sex: Female

DRUGS (6)
  1. LOSARTAN POTASSIUM AND HYDROCHLOROTHIAZIDE [Concomitant]
  2. CLINDAMYCIN HCL [Suspect]
     Route: 048
  3. HEPARIN [Concomitant]
     Dosage: UNK
     Dates: start: 20110114
  4. AUGMENTIN '125' [Concomitant]
     Dosage: UNK
     Dates: start: 20110114, end: 20110116
  5. OFLOXACIN [Concomitant]
     Dosage: UNK
     Dates: start: 20110114, end: 20110116
  6. AMOXICILLIN BASE [Concomitant]
     Dosage: UNK
     Route: 048
     Dates: start: 20110116, end: 20110206

REACTIONS (2)
  - DRUG ERUPTION [None]
  - SKIN TEST NEGATIVE [None]
